FAERS Safety Report 20332183 (Version 1)
Quarter: 2022Q1

REPORT INFORMATION
  Report Type: Spontaneous
  Country: FR (occurrence: FR)
  Receive Date: 20220113
  Receipt Date: 20220113
  Transmission Date: 20220423
  Serious: Yes (Hospitalization)
  Sender: FDA-Public Use
  Company Number: FR-CELGENE-FRA-20211208373

PATIENT
  Age: 69 Year
  Sex: Male
  Weight: 71 kg

DRUGS (5)
  1. OXALIPLATIN [Suspect]
     Active Substance: OXALIPLATIN
     Indication: Pancreatic neoplasm
     Dosage: UNK
     Route: 041
     Dates: start: 2018, end: 20210420
  2. IRINOTECAN [Suspect]
     Active Substance: IRINOTECAN
     Indication: Pancreatic neoplasm
     Dosage: UNK
     Route: 041
     Dates: start: 2018, end: 20210420
  3. FLUOROURACIL [Suspect]
     Active Substance: FLUOROURACIL
     Indication: Pancreatic neoplasm
     Dosage: UNK
     Route: 041
     Dates: start: 2018, end: 20210420
  4. GEMZAR [Suspect]
     Active Substance: GEMCITABINE HYDROCHLORIDE
     Indication: Pancreatic neoplasm
     Dosage: 1000 MILLIGRAM/SQ. METER
     Route: 041
     Dates: start: 20210420
  5. ABRAXANE [Suspect]
     Active Substance: PACLITAXEL
     Indication: Pancreatic neoplasm
     Dosage: 125 MILLIGRAM/SQ. METER
     Route: 041
     Dates: start: 20210420, end: 20210611

REACTIONS (2)
  - Right ventricular ejection fraction decreased [Not Recovered/Not Resolved]
  - Cardiac failure [Not Recovered/Not Resolved]

NARRATIVE: CASE EVENT DATE: 20210721
